FAERS Safety Report 24228715 (Version 1)
Quarter: 2024Q3

REPORT INFORMATION
  Report Type: Spontaneous
  Country: US (occurrence: US)
  Receive Date: 20240820
  Receipt Date: 20240820
  Transmission Date: 20241016
  Serious: No
  Sender: SANOFI AVENTIS
  Company Number: US-SA-2023MK000096

PATIENT
  Age: 36 Year
  Sex: Female

DRUGS (2)
  1. AFREZZA [Suspect]
     Active Substance: INSULIN HUMAN
     Indication: Product used for unknown indication
     Dosage: 4-8 UNITS WITH MEALS
     Dates: start: 202309
  2. AFREZZA [Suspect]
     Active Substance: INSULIN HUMAN
     Dosage: 4-8 UNITS WITH MEALS
     Dates: start: 202309

REACTIONS (2)
  - Drug ineffective [Unknown]
  - Wrong technique in product usage process [Unknown]

NARRATIVE: CASE EVENT DATE: 20231016
